FAERS Safety Report 25451079 (Version 1)
Quarter: 2025Q2

REPORT INFORMATION
  Report Type: Spontaneous
  Country: PT (occurrence: PT)
  Receive Date: 20250618
  Receipt Date: 20250618
  Transmission Date: 20250717
  Serious: Yes (Other)
  Sender: PFIZER
  Company Number: PT-PFIZER INC-202500122238

PATIENT
  Age: 67 Year
  Sex: Male

DRUGS (1)
  1. METHOTREXATE SODIUM [Suspect]
     Active Substance: METHOTREXATE SODIUM
     Indication: Autoinflammatory disease
     Dates: start: 202401

REACTIONS (3)
  - Angioimmunoblastic T-cell lymphoma [Unknown]
  - Body tinea [Unknown]
  - Off label use [Unknown]
